FAERS Safety Report 13180846 (Version 1)
Quarter: 2017Q1

REPORT INFORMATION
  Report Type: Spontaneous
  Country: US (occurrence: US)
  Receive Date: 20170202
  Receipt Date: 20170202
  Transmission Date: 20170428
  Serious: No
  Sender: FDA-Public Use
  Company Number: US-SMITH AND NEPHEW, INC-2016SMT00054

PATIENT
  Age: 65 Year
  Sex: Male
  Weight: 95.24 kg

DRUGS (5)
  1. LYRICA [Concomitant]
     Active Substance: PREGABALIN
     Dosage: 300 MG, 3X/DAY
  2. REGRANEX [Suspect]
     Active Substance: BECAPLERMIN
     Indication: DECUBITUS ULCER
     Dosage: UNK, 1X/DAY
     Route: 061
     Dates: start: 20151201
  3. ULTRAM [Concomitant]
     Active Substance: TRAMADOL HYDROCHLORIDE
     Dosage: 100 MG, 3X/DAY
  4. VITAMINS UNSPECIFIED [Concomitant]
     Active Substance: VITAMINS
  5. VICODIN [Concomitant]
     Active Substance: ACETAMINOPHEN\HYDROCODONE BITARTRATE

REACTIONS (3)
  - Application site scab [Recovering/Resolving]
  - Drug ineffective for unapproved indication [Unknown]
  - Application site paraesthesia [Recovering/Resolving]

NARRATIVE: CASE EVENT DATE: 20151201
